FAERS Safety Report 22252189 (Version 3)
Quarter: 2023Q2

REPORT INFORMATION
  Report Type: Report from Study
  Country: CA (occurrence: CA)
  Receive Date: 20230426
  Receipt Date: 20230621
  Transmission Date: 20230722
  Serious: Yes (Other)
  Sender: FDA-Public Use
  Company Number: CA-JNJFOC-20230446941

PATIENT
  Age: 44 Year
  Sex: Female

DRUGS (2)
  1. REMICADE [Suspect]
     Active Substance: INFLIXIMAB
     Indication: Crohn^s disease
     Dosage: THE PATIENT RECEIVED REMICADE INFUSION ON 04-MAY-2016?ON 20-APR-2023, PATIENT RECEIVED 105TH INFLIXI
     Route: 041
     Dates: start: 20150218
  2. CYMBALTA [Concomitant]
     Active Substance: DULOXETINE HYDROCHLORIDE
     Indication: Depression
     Route: 065
     Dates: start: 20230215

REACTIONS (10)
  - Abdominal distension [Recovering/Resolving]
  - Defaecation urgency [Recovering/Resolving]
  - Abdominal pain [Unknown]
  - Fatigue [Recovering/Resolving]
  - Diarrhoea [Unknown]
  - Flatulence [Recovering/Resolving]
  - Weight decreased [Recovering/Resolving]
  - Loss of personal independence in daily activities [Unknown]
  - General physical health deterioration [Unknown]
  - Frequent bowel movements [Unknown]

NARRATIVE: CASE EVENT DATE: 20220323
